FAERS Safety Report 20083368 (Version 2)
Quarter: 2021Q4

REPORT INFORMATION
  Report Type: Spontaneous
  Country: IL (occurrence: IL)
  Receive Date: 20211117
  Receipt Date: 20211122
  Transmission Date: 20220303
  Serious: Yes (Other)
  Sender: FDA-Public Use
  Company Number: IL-CELLTRION INC.-2021IL015272

PATIENT

DRUGS (2)
  1. TRUXIMA [Suspect]
     Active Substance: RITUXIMAB-ABBS
     Indication: Mantle cell lymphoma
     Dosage: 300MG (OUT OF PLANNED 600MG)
     Route: 042
     Dates: start: 20211031
  2. TRUXIMA [Suspect]
     Active Substance: RITUXIMAB-ABBS
     Dosage: 300MG (OUT OF PLANNED 600MG)
     Route: 042
     Dates: start: 20211107

REACTIONS (5)
  - Syncope [Recovered/Resolved]
  - Incontinence [Recovered/Resolved]
  - Electrocardiogram abnormal [Recovered/Resolved]
  - Seizure [Recovered/Resolved]
  - Off label use [Unknown]

NARRATIVE: CASE EVENT DATE: 20211031
